FAERS Safety Report 8823821 (Version 1)
Quarter: 2012Q4

REPORT INFORMATION
  Report Type: 
  Country: US (occurrence: US)
  Receive Date: 20121003
  Receipt Date: 20121003
  Transmission Date: 20130627
  Serious: No
  Sender: FDA-Public Use
  Company Number: US-PFIZER INC-2012244712

PATIENT
  Age: 62 Year
  Sex: Female
  Weight: 108.84 kg

DRUGS (5)
  1. PRISTIQ [Suspect]
     Indication: DEPRESSION
     Dosage: 100 mg, 1x/day
     Route: 048
     Dates: start: 201201
  2. LISINOPRIL [Concomitant]
     Indication: HYPERTENSION
  3. ATIVAN [Concomitant]
  4. DEXILANT [Concomitant]
  5. TIMOLOL [Concomitant]
     Indication: GLAUCOMA
     Dosage: UNK

REACTIONS (2)
  - Pain in extremity [Unknown]
  - Pain in extremity [Unknown]
